FAERS Safety Report 9095402 (Version 3)
Quarter: 2013Q1

REPORT INFORMATION
  Report Type: Spontaneous
  Country: US (occurrence: US)
  Receive Date: 20130201
  Receipt Date: 20130307
  Transmission Date: 20140127
  Serious: No
  Sender: FDA-Public Use
  Company Number: US-PFIZER INC-2013039638

PATIENT
  Age: 68 Year
  Sex: Female

DRUGS (2)
  1. PROTONIX [Suspect]
     Dosage: UNK TWICE DAILY
     Dates: start: 2010
  2. PROTONIX [Suspect]
     Dosage: UNK
     Dates: start: 2012

REACTIONS (3)
  - Hypertension [Unknown]
  - Malaise [Unknown]
  - Headache [Unknown]
